FAERS Safety Report 15769284 (Version 1)
Quarter: 2018Q4

REPORT INFORMATION
  Report Type: Spontaneous
  Country: US (occurrence: US)
  Receive Date: 20181224
  Receipt Date: 20181224
  Transmission Date: 20190205
  Serious: No
  Sender: FDA-Public Use
  Company Number: None

PATIENT
  Sex: Female

DRUGS (1)
  1. BALANCE LOVELY BRAND BORIC ACID 600MG [Suspect]
     Active Substance: BORIC ACID

REACTIONS (5)
  - Vision blurred [None]
  - Dizziness [None]
  - Product shape issue [None]
  - Physical product label issue [None]
  - Incorrect route of product administration [None]
